FAERS Safety Report 14629810 (Version 21)
Quarter: 2024Q2

REPORT INFORMATION
  Report Type: Other
  Country: DE (occurrence: None)
  Receive Date: 20180313
  Receipt Date: 20240612
  Transmission Date: 20240716
  Serious: Yes (Hospitalization)
  Sender: FDA-Public Use
  Company Number: DE-ROCHE-2087412

PATIENT
  Age: 43 Year
  Sex: Female

DRUGS (16)
  1. OCREVUS [Suspect]
     Active Substance: OCRELIZUMAB
     Indication: Relapsing-remitting multiple sclerosis
     Dosage: 600MG, 182 DAYS, 189 DAYS, 168 DAYS
     Route: 042
     Dates: start: 20180228
  2. OCREVUS [Suspect]
     Active Substance: OCRELIZUMAB
     Route: 042
     Dates: start: 20180905
  3. OCREVUS [Suspect]
     Active Substance: OCRELIZUMAB
     Route: 042
     Dates: start: 20190314
  4. OCREVUS [Suspect]
     Active Substance: OCRELIZUMAB
     Route: 042
     Dates: start: 20190924
  5. OCREVUS [Suspect]
     Active Substance: OCRELIZUMAB
     Dosage: 6 INFUSION
     Route: 042
     Dates: start: 20200311
  6. OCREVUS [Suspect]
     Active Substance: OCRELIZUMAB
     Route: 042
     Dates: start: 20210310
  7. VARICELLA-ZOSTER VIRUS STRAIN OKA/MERCK LIVE ANTIGEN [Suspect]
     Active Substance: VARICELLA-ZOSTER VIRUS STRAIN OKA/MERCK LIVE ANTIGEN
     Indication: Product used for unknown indication
     Route: 065
     Dates: start: 20200803
  8. PFIZER-BIONTECH COVID-19 VACCINE [Suspect]
     Active Substance: TOZINAMERAN
     Indication: COVID-19 prophylaxis
     Dosage: FIRST VACCINE
     Route: 065
     Dates: start: 20210624
  9. PFIZER-BIONTECH COVID-19 VACCINE [Suspect]
     Active Substance: TOZINAMERAN
     Dosage: SECOND VACCINE
     Route: 065
     Dates: start: 20210715
  10. INFLUENZA VIRUS VACCINE [Suspect]
     Active Substance: INFLUENZA VIRUS VACCINE
     Indication: Product used for unknown indication
     Route: 065
     Dates: start: 20201211
  11. LEVOTHYROXINE [Concomitant]
     Active Substance: LEVOTHYROXINE\LEVOTHYROXINE SODIUM
  12. VITAMIN D3 [Concomitant]
     Active Substance: CHOLECALCIFEROL
  13. PROGESTERONE [Concomitant]
     Active Substance: PROGESTERONE
  14. ALPHA LIPONSAURE [Concomitant]
  15. DYDROGESTERONE\ESTRADIOL [Concomitant]
     Active Substance: DYDROGESTERONE\ESTRADIOL
  16. ALPHA LIPOIC ACID [Concomitant]
     Active Substance: .ALPHA.-LIPOIC ACID

REACTIONS (34)
  - Heavy menstrual bleeding [Recovered/Resolved]
  - Sleep disorder [Unknown]
  - Cough [Recovering/Resolving]
  - Arthralgia [Recovered/Resolved]
  - Palpitations [Recovered/Resolved]
  - Hypotension [Unknown]
  - Hypotonia [Recovered/Resolved]
  - Hair colour changes [Not Recovered/Not Resolved]
  - Fall [Unknown]
  - Ligament sprain [Recovered/Resolved]
  - Blood cholesterol increased [Recovering/Resolving]
  - Headache [Recovered/Resolved]
  - Acne [Recovered/Resolved]
  - Toothache [Recovered/Resolved]
  - Influenza like illness [Recovered/Resolved]
  - White blood cell count increased [Recovered/Resolved]
  - C-reactive protein abnormal [Recovered/Resolved]
  - Vaccination site reaction [Recovered/Resolved]
  - Urticaria [Recovered/Resolved]
  - Nasopharyngitis [Recovered/Resolved]
  - Secretion discharge [Recovered/Resolved]
  - Listless [Recovered/Resolved]
  - Vaccination failure [Not Recovered/Not Resolved]
  - Vomiting [Recovered/Resolved]
  - Diarrhoea [Recovered/Resolved]
  - Migraine [Recovered/Resolved]
  - Initial insomnia [Recovered/Resolved]
  - COVID-19 [Recovered/Resolved]
  - Fatigue [Not Recovered/Not Resolved]
  - Menopause [Recovered/Resolved]
  - Fibroma [Recovered/Resolved]
  - Uterine cyst [Recovered/Resolved]
  - Dysmenorrhoea [Not Recovered/Not Resolved]
  - Iron deficiency [Not Recovered/Not Resolved]

NARRATIVE: CASE EVENT DATE: 20180228
